FAERS Safety Report 8440416-X (Version None)
Quarter: 2012Q2

REPORT INFORMATION
  Report Type: 
  Country: None (occurrence: None)
  Receive Date: 20120615
  Receipt Date: 20120605
  Transmission Date: 20120825
  Serious: Yes (Hospitalization)
  Sender: FDA-Public Use
  Company Number: US-BAYER-2012-053253

PATIENT
  Age: 21 Year
  Sex: Female
  Weight: 54.422 kg

DRUGS (3)
  1. YAZ [Suspect]
     Indication: CONTRACEPTION
     Dosage: UNK
     Dates: start: 20070719, end: 20080722
  2. YASMIN [Suspect]
     Indication: CONTRACEPTION
     Dosage: UNK
     Dates: start: 20070719, end: 20080722
  3. DROSPIRENONE AND ETHINYL ESTRADIOL [Suspect]
     Indication: CONTRACEPTION
     Dosage: UNK
     Dates: start: 20090104, end: 20090819

REACTIONS (10)
  - PAIN IN EXTREMITY [None]
  - INJURY [None]
  - PAIN [None]
  - OEDEMA PERIPHERAL [None]
  - PNEUMOTHORAX [None]
  - CHEST PAIN [None]
  - HAEMOTHORAX [None]
  - DYSPNOEA [None]
  - DEEP VEIN THROMBOSIS [None]
  - POSTOPERATIVE WOUND INFECTION [None]
